FAERS Safety Report 10191916 (Version 1)
Quarter: 2014Q2

REPORT INFORMATION
  Report Type: Spontaneous
  Country: RU (occurrence: RU)
  Receive Date: 20140523
  Receipt Date: 20140523
  Transmission Date: 20141212
  Serious: Yes (Life-Threatening)
  Sender: FDA-Public Use
  Company Number: RU-GLAXOSMITHKLINE-B0996457A

PATIENT
  Age: 41 Year
  Sex: Female
  Weight: 49 kg

DRUGS (3)
  1. SERETIDE [Suspect]
     Indication: ASTHMA
     Dosage: 1PUFF TWICE PER DAY
     Route: 055
     Dates: start: 20140425
  2. LASOLVAN [Concomitant]
     Indication: ASTHMA
     Route: 065
     Dates: start: 20140426
  3. BERODUAL [Concomitant]
     Indication: ASTHMA
     Route: 065
     Dates: start: 20140426

REACTIONS (4)
  - Paraesthesia [Recovered/Resolved]
  - Pharyngeal oedema [Recovered/Resolved]
  - Dyspnoea [Recovered/Resolved]
  - Cough [Recovered/Resolved]
